FAERS Safety Report 10211287 (Version 1)
Quarter: 2014Q2

REPORT INFORMATION
  Report Type: Spontaneous
  Country: US (occurrence: None)
  Receive Date: 20140530
  Receipt Date: 20140530
  Transmission Date: 20141212
  Serious: Yes (Life-Threatening)
  Sender: FDA-Public Use
  Company Number: None

PATIENT
  Age: 60 Year
  Sex: Female
  Weight: 90.72 kg

DRUGS (1)
  1. EVISTA [Suspect]
     Indication: OSTEOPOROSIS
     Dosage: 1  ONCE DAILY TAKEN BY MOUTH
     Route: 048
     Dates: start: 20131227, end: 20140329

REACTIONS (7)
  - Influenza like illness [None]
  - Joint stiffness [None]
  - Depression [None]
  - Memory impairment [None]
  - Suicidal ideation [None]
  - Mental impairment [None]
  - Impaired work ability [None]
